FAERS Safety Report 4510230-6 (Version None)
Quarter: 2004Q4

REPORT INFORMATION
  Report Type: 
  Country: None (occurrence: None)
  Receive Date: 20041124
  Receipt Date: 20041112
  Transmission Date: 20050328
  Serious: Yes (Other)
  Sender: FDA-Public Use
  Company Number: FR-ROCHE-386242

PATIENT
  Age: 35 Year
  Sex: Female

DRUGS (2)
  1. NICARDIPINE HCL [Suspect]
     Indication: TOCOLYSIS
     Route: 042
  2. BETAMETHASONE [Concomitant]
     Indication: PROPHYLAXIS
     Dosage: INITIATED BEFORE SURGERY AND DISCONTINUED 12 HOURS AFTER SURGERY.

REACTIONS (10)
  - ADHESION [None]
  - BOWEL SOUNDS ABNORMAL [None]
  - CAESAREAN SECTION [None]
  - DRUG EXPOSURE DURING PREGNANCY [None]
  - HIATUS HERNIA [None]
  - PERITONEAL DISORDER [None]
  - SMALL INTESTINAL OBSTRUCTION [None]
  - TACHYCARDIA [None]
  - UTERINE CONTRACTIONS DURING PREGNANCY [None]
  - VOMITING [None]
